FAERS Safety Report 4777805-0 (Version None)
Quarter: 2005Q3

REPORT INFORMATION
  Report Type: 
  Country: None (occurrence: None)
  Receive Date: 20050925
  Receipt Date: 20050914
  Transmission Date: 20060218
  Serious: Yes (Death)
  Sender: FDA-Public Use
  Company Number: NSADSS2003015543

PATIENT
  Sex: Female

DRUGS (18)
  1. REMICADE [Suspect]
     Route: 041
     Dates: start: 20020514
  2. REMICADE [Suspect]
     Indication: RHEUMATOID ARTHRITIS
     Route: 041
     Dates: start: 20020514
  3. PREDNISONE [Concomitant]
  4. NEURONTIN [Concomitant]
  5. METHOTREXATE [Concomitant]
  6. ASPIRIN [Concomitant]
  7. LOTREL [Concomitant]
  8. LOTREL [Concomitant]
  9. CALCIUM+D [Concomitant]
  10. CALCIUM+D [Concomitant]
  11. MULTI-VITAMINS [Concomitant]
  12. MULTI-VITAMINS [Concomitant]
  13. MULTI-VITAMINS [Concomitant]
  14. MULTI-VITAMINS [Concomitant]
  15. MULTI-VITAMINS [Concomitant]
  16. MULTI-VITAMINS [Concomitant]
  17. MULTI-VITAMINS [Concomitant]
  18. MULTI-VITAMINS [Concomitant]

REACTIONS (4)
  - DEEP VEIN THROMBOSIS [None]
  - DIABETES MELLITUS [None]
  - MULTI-ORGAN FAILURE [None]
  - PNEUMONIA [None]
